FAERS Safety Report 23408829 (Version 3)
Quarter: 2024Q1

REPORT INFORMATION
  Report Type: Spontaneous
  Country: JP (occurrence: JP)
  Receive Date: 20240117
  Receipt Date: 20240318
  Transmission Date: 20240410
  Serious: Yes (Other)
  Sender: FDA-Public Use
  Company Number: JP-BRISTOL-MYERS SQUIBB COMPANY-2024-007773

PATIENT
  Age: 89 Year
  Sex: Male

DRUGS (2)
  1. YERVOY [Suspect]
     Active Substance: IPILIMUMAB
     Indication: Pleural mesothelioma malignant
     Dates: start: 20231214, end: 20231214
  2. OPDIVO [Suspect]
     Active Substance: NIVOLUMAB
     Indication: Pleural mesothelioma malignant
     Dates: start: 20231214, end: 20231214

REACTIONS (14)
  - Interstitial lung disease [Recovering/Resolving]
  - Hepatitis [Recovering/Resolving]
  - Haemophagocytic lymphohistiocytosis [Recovering/Resolving]
  - Cytokine release syndrome [Recovering/Resolving]
  - Chronic kidney disease [Unknown]
  - Goitre [Unknown]
  - Hypertension [Unknown]
  - Hyperuricaemia [Unknown]
  - Dyslipidaemia [Unknown]
  - Prostate cancer [Unknown]
  - Cervical spinal stenosis [Unknown]
  - Aortic dissection [Unknown]
  - Cholelithiasis [Unknown]
  - Vitiligo [Unknown]

NARRATIVE: CASE EVENT DATE: 20231218
